FAERS Safety Report 8397546-0 (Version None)
Quarter: 2012Q2

REPORT INFORMATION
  Report Type: 
  Country: None (occurrence: None)
  Receive Date: 20120529
  Receipt Date: 20120529
  Transmission Date: 20120825
  Serious: Yes (Life-Threatening, Hospitalization)
  Sender: FDA-Public Use
  Company Number: None

PATIENT
  Sex: Female
  Weight: 63.5036 kg

DRUGS (1)
  1. AVELOX [Suspect]
     Dosage: 400MG ONCE PO
     Route: 048
     Dates: start: 20120527, end: 20120527

REACTIONS (14)
  - OXYGEN SATURATION DECREASED [None]
  - BLOOD PRESSURE DECREASED [None]
  - MUSCULAR WEAKNESS [None]
  - MOVEMENT DISORDER [None]
  - DIARRHOEA [None]
  - WHEEZING [None]
  - OBSTRUCTIVE AIRWAYS DISORDER [None]
  - DISORIENTATION [None]
  - ABASIA [None]
  - ABDOMINAL PAIN [None]
  - DYSPNOEA [None]
  - HEART RATE INCREASED [None]
  - HYPERHIDROSIS [None]
  - PARAESTHESIA ORAL [None]
